FAERS Safety Report 5963415-6 (Version None)
Quarter: 2008Q4

REPORT INFORMATION
  Report Type: 
  Country: None (occurrence: None)
  Receive Date: 20081121
  Receipt Date: 20081121
  Transmission Date: 20090506
  Serious: No
  Sender: FDA-Public Use
  Company Number: None

PATIENT
  Age: 54 Year
  Sex: Male
  Weight: 76 kg

DRUGS (13)
  1. INSULIN ASPART [Suspect]
     Indication: TYPE 1 DIABETES MELLITUS
     Dosage: ASPART: SLIDING SCALE
  2. HUMULIN 70/30 [Suspect]
     Dosage: 70/30 18U BID
  3. HEPARIN [Concomitant]
  4. AMLODIPINE [Concomitant]
  5. ASPIRIN [Concomitant]
  6. ATORVASTATIN [Concomitant]
  7. DEPAKOTE [Concomitant]
  8. FUROSEMIDE [Concomitant]
  9. IBUPROFEN TABLETS [Concomitant]
  10. LANSOPRAZOLE [Concomitant]
  11. SYNTHROID [Concomitant]
  12. NICOTINE [Concomitant]
  13. LISINOPRIL [Concomitant]

REACTIONS (3)
  - BLOOD GLUCOSE DECREASED [None]
  - BLOOD POTASSIUM INCREASED [None]
  - INCOHERENT [None]
